FAERS Safety Report 17142718 (Version 1)
Quarter: 2019Q4

REPORT INFORMATION
  Report Type: Spontaneous
  Country: IT (occurrence: IT)
  Receive Date: 20191211
  Receipt Date: 20191211
  Transmission Date: 20200122
  Serious: Yes (Hospitalization)
  Sender: FDA-Public Use
  Company Number: IT-NOVOPROD-700147

PATIENT
  Age: 18 Year
  Sex: Female

DRUGS (4)
  1. TRESIBA [Suspect]
     Active Substance: INSULIN DEGLUDEC
     Dosage: 26 IU, QD
     Route: 058
     Dates: start: 20180401
  2. TRESIBA [Suspect]
     Active Substance: INSULIN DEGLUDEC
     Indication: TYPE 1 DIABETES MELLITUS
     Dosage: 25 IU, QD (25 IU ON MORNING) (1 DF QD)
     Route: 058
     Dates: start: 20180401
  3. INSULIN LISPRO [Suspect]
     Active Substance: INSULIN LISPRO
     Indication: TYPE 1 DIABETES MELLITUS
     Dosage: 20 IU, QD (5 U+10+10) (1 DF QD)
     Route: 058
  4. INSULIN LISPRO [Suspect]
     Active Substance: INSULIN LISPRO
     Dosage: 25 IU, QD (5 U+10+10 )
     Route: 058

REACTIONS (6)
  - Headache [Recovering/Resolving]
  - Urine abnormality [Recovering/Resolving]
  - Arthralgia [Recovering/Resolving]
  - Hyperglycaemia [Recovering/Resolving]
  - Drug ineffective [Recovering/Resolving]
  - Nausea [Recovering/Resolving]

NARRATIVE: CASE EVENT DATE: 20191001
